FAERS Safety Report 13844995 (Version 1)
Quarter: 2017Q3

REPORT INFORMATION
  Report Type: Other
  Country: GB (occurrence: GB)
  Receive Date: 20170808
  Receipt Date: 20170808
  Transmission Date: 20171127
  Serious: Yes (Hospitalization, Other)
  Sender: FDA-Public Use
  Company Number: GB-GLENMARK PHARMACEUTICALS-2017GMK028406

PATIENT

DRUGS (1)
  1. TOPIRAMATE. [Suspect]
     Active Substance: TOPIRAMATE
     Indication: MIGRAINE WITH AURA
     Dosage: 175 MG, UNK
     Route: 048
     Dates: start: 20150710, end: 20170429

REACTIONS (9)
  - Somnolence [Unknown]
  - Lymphopenia [Recovered/Resolved]
  - Blood disorder [Recovered/Resolved]
  - Neutropenia [Recovered/Resolved]
  - Aphonia [Unknown]
  - Infection [Unknown]
  - Contusion [Unknown]
  - Fatigue [Unknown]
  - Oropharyngeal pain [Unknown]

NARRATIVE: CASE EVENT DATE: 20160113
